FAERS Safety Report 25423649 (Version 1)
Quarter: 2025Q2

REPORT INFORMATION
  Report Type: Spontaneous
  Country: US (occurrence: US)
  Receive Date: 20250611
  Receipt Date: 20250611
  Transmission Date: 20250717
  Serious: No
  Sender: TAKEDA
  Company Number: US-TAKEDA-2025TUS052864

PATIENT
  Sex: Female

DRUGS (1)
  1. COLCRYS [Suspect]
     Active Substance: COLCHICINE
     Indication: Arthritis

REACTIONS (3)
  - No adverse event [Unknown]
  - Product availability issue [Unknown]
  - Product use in unapproved indication [Unknown]
